FAERS Safety Report 11265938 (Version 1)
Quarter: 2015Q3

REPORT INFORMATION
  Report Type: Spontaneous
  Country: US (occurrence: US)
  Receive Date: 20150713
  Receipt Date: 20150713
  Transmission Date: 20151125
  Serious: No
  Sender: FDA-Public Use
  Company Number: US-TEVA-577457USA

PATIENT
  Age: 70 Year
  Sex: Male
  Weight: 81.72 kg

DRUGS (2)
  1. PLAVIX [Concomitant]
     Active Substance: CLOPIDOGREL BISULFATE
  2. GRANIX [Suspect]
     Active Substance: TBO-FILGRASTIM
     Indication: WHITE BLOOD CELL COUNT DECREASED
     Dates: start: 201503, end: 201505

REACTIONS (1)
  - White blood cell count decreased [Unknown]

NARRATIVE: CASE EVENT DATE: 201506
